FAERS Safety Report 21790146 (Version 1)
Quarter: 2022Q4

REPORT INFORMATION
  Report Type: Spontaneous
  Country: US (occurrence: None)
  Receive Date: 20221228
  Receipt Date: 20221228
  Transmission Date: 20230113
  Serious: Yes (Life-Threatening, Hospitalization, Disabling)
  Sender: FDA-Public Use
  Company Number: None

PATIENT
  Age: 48 Year
  Sex: Male
  Weight: 178.8 kg

DRUGS (1)
  1. LUMASON [Suspect]
     Active Substance: SULFUR HEXAFLUORIDE
     Indication: Contrast echocardiogram
     Dates: start: 20221220, end: 20221220

REACTIONS (11)
  - Contrast media reaction [None]
  - Injection site pain [None]
  - Pain in extremity [None]
  - Pain [None]
  - Pain in extremity [None]
  - Dyschromatopsia [None]
  - Xanthopsia [None]
  - Loss of consciousness [None]
  - Seizure [None]
  - Injection site scar [None]
  - Injection site induration [None]

NARRATIVE: CASE EVENT DATE: 20221220
